FAERS Safety Report 6737963-5 (Version None)
Quarter: 2010Q2

REPORT INFORMATION
  Report Type: 
  Country: None (occurrence: None)
  Receive Date: 20100524
  Receipt Date: 20100518
  Transmission Date: 20101027
  Serious: Yes (Hospitalization)
  Sender: FDA-Public Use
  Company Number: FR-ROCHE-699936

PATIENT
  Age: 80 Year
  Sex: Female

DRUGS (6)
  1. MIRCERA [Suspect]
     Route: 058
     Dates: start: 20100309
  2. MIRCERA [Suspect]
     Route: 058
     Dates: start: 20100405, end: 20100415
  3. LASIX [Concomitant]
  4. ATARAX [Concomitant]
  5. ZOLPIDEM [Concomitant]
  6. HOMEOPLASMINE [Concomitant]

REACTIONS (1)
  - DERMATITIS BULLOUS [None]
